FAERS Safety Report 7413471-3 (Version None)
Quarter: 2011Q2

REPORT INFORMATION
  Report Type: 
  Country: None (occurrence: None)
  Receive Date: 20110413
  Receipt Date: 20110404
  Transmission Date: 20111010
  Serious: Yes (Other)
  Sender: FDA-Public Use
  Company Number: PHHY2011JP15793

PATIENT
  Sex: Female

DRUGS (6)
  1. PREDNISOLONE [Suspect]
     Indication: RHEUMATOID ARTHRITIS
     Dosage: 5 MG, BID
  2. RINDERON A [Suspect]
     Indication: RHEUMATOID SCLERITIS
     Dosage: APPROPRIATE DOSE 6 TIMES A DAY
     Dates: end: 20100422
  3. VALTREX [Suspect]
     Indication: VIRAL UVEITIS
     Dosage: 500 MG, BID
     Dates: end: 20100214
  4. BREDININ [Suspect]
     Indication: RHEUMATOID ARTHRITIS
     Dosage: 50 MG, QD
  5. NEORAL [Suspect]
     Indication: RHEUMATOID SCLERITIS
     Dosage: 50 MG, QD
     Route: 048
     Dates: start: 20091112, end: 20091125
  6. RHEUMATREX [Suspect]
     Indication: RHEUMATOID ARTHRITIS
     Dosage: 2 MG, BID

REACTIONS (3)
  - PUNCTATE KERATITIS [None]
  - CORNEAL DISORDER [None]
  - HERPES OPHTHALMIC [None]
